FAERS Safety Report 16753269 (Version 2)
Quarter: 2020Q2

REPORT INFORMATION
  Report Type: Spontaneous
  Country: US (occurrence: US)
  Receive Date: 20190829
  Receipt Date: 20200619
  Transmission Date: 20200713
  Serious: No
  Sender: FDA-Public Use
  Company Number: US-ELI_LILLY_AND_COMPANY-US201908012549

PATIENT
  Age: 77 Year
  Sex: Female

DRUGS (11)
  1. HUMALOG [Suspect]
     Active Substance: INSULIN LISPRO
     Dosage: UNK UNK, UNKNOWN
     Route: 065
  2. HUMALOG [Suspect]
     Active Substance: INSULIN LISPRO
     Dosage: UNK UNK, UNKNOWN
     Route: 065
  3. INSULIN LISPRO LILLY (MIRIOPEN) (KWIKPEN) [Suspect]
     Active Substance: INSULIN LISPRO
     Dosage: UNK UNK, UNKNOWN
     Route: 065
  4. INSULIN LISPRO LILLY (MIRIOPEN) (KWIKPEN) [Suspect]
     Active Substance: INSULIN LISPRO
     Indication: BLOOD GLUCOSE ABNORMAL
     Dosage: UNK UNK, UNKNOWN
     Route: 065
  5. INSULIN LISPRO LILLY (MIRIOPEN) (KWIKPEN) [Suspect]
     Active Substance: INSULIN LISPRO
     Dosage: UNK UNK, UNKNOWN
     Route: 065
  6. INSULIN LISPRO LILLY (MIRIOPEN) (KWIKPEN) [Suspect]
     Active Substance: INSULIN LISPRO
     Dosage: UNK UNK, UNKNOWN
     Route: 065
  7. INSULIN LISPRO LILLY (MIRIOPEN) (KWIKPEN) [Suspect]
     Active Substance: INSULIN LISPRO
     Dosage: UNK UNK, UNKNOWN
     Route: 065
  8. INSULIN LISPRO LILLY (MIRIOPEN) (KWIKPEN) [Suspect]
     Active Substance: INSULIN LISPRO
     Indication: BLOOD GLUCOSE ABNORMAL
     Dosage: UNK UNK, UNKNOWN
     Route: 065
  9. INSULIN LISPRO LILLY (MIRIOPEN) (KWIKPEN) [Suspect]
     Active Substance: INSULIN LISPRO
     Dosage: UNK UNK, UNKNOWN
     Route: 065
  10. HUMALOG [Suspect]
     Active Substance: INSULIN LISPRO
     Indication: PRODUCT USED FOR UNKNOWN INDICATION
     Dosage: UNK UNK, UNKNOWN
     Route: 065
  11. HUMALOG [Suspect]
     Active Substance: INSULIN LISPRO
     Dosage: UNK UNK, UNKNOWN
     Route: 065

REACTIONS (3)
  - Blood glucose increased [Not Recovered/Not Resolved]
  - Product dose omission [Unknown]
  - Accidental underdose [Unknown]

NARRATIVE: CASE EVENT DATE: 20200530
